FAERS Safety Report 25129252 (Version 1)
Quarter: 2025Q1

REPORT INFORMATION
  Report Type: Spontaneous
  Country: US (occurrence: US)
  Receive Date: 20250327
  Receipt Date: 20250327
  Transmission Date: 20250408
  Serious: Yes (Other)
  Sender: TEVA
  Company Number: US-TEVA-VS-3312782

PATIENT

DRUGS (1)
  1. VILAZODONE [Suspect]
     Active Substance: VILAZODONE
     Indication: Product used for unknown indication
     Route: 065

REACTIONS (3)
  - Depression [Unknown]
  - Gastrointestinal disorder [Unknown]
  - Drug ineffective [Unknown]
